FAERS Safety Report 8244753-3 (Version None)
Quarter: 2012Q1

REPORT INFORMATION
  Report Type: 
  Country: None (occurrence: None)
  Receive Date: 20120329
  Receipt Date: 20110317
  Transmission Date: 20120608
  Serious: No
  Sender: FDA-Public Use
  Company Number: US-MYLANLABS-2011S1005819

PATIENT
  Age: 49 Year
  Sex: Female

DRUGS (10)
  1. NUVIGIL [Concomitant]
  2. ZANAFLEX [Concomitant]
     Indication: INSOMNIA
  3. DILAUDID [Concomitant]
     Indication: BREAKTHROUGH PAIN
  4. FENTANYL-100 [Suspect]
     Indication: COMPLEX REGIONAL PAIN SYNDROME
     Dosage: CHANGED Q72H
     Route: 062
     Dates: start: 20110301
  5. ZOMIG [Concomitant]
     Indication: MIGRAINE
  6. CATAPRES [Concomitant]
  7. VALIUM [Concomitant]
     Indication: MIGRAINE
  8. DRAMAMINE [Concomitant]
     Indication: NAUSEA
  9. TOPAMAX [Concomitant]
  10. ZOLOFT [Concomitant]

REACTIONS (3)
  - DRUG INEFFECTIVE [None]
  - DRUG WITHDRAWAL SYNDROME [None]
  - PAIN [None]
